FAERS Safety Report 8937014 (Version 1)
Quarter: 2012Q4

REPORT INFORMATION
  Report Type: 
  Country: IT (occurrence: IT)
  Receive Date: 20121130
  Receipt Date: 20121130
  Transmission Date: 20130627
  Serious: Yes (Hospitalization)
  Sender: FDA-Public Use
  Company Number: IT-ROCHE-1162082

PATIENT
  Age: 31 Year
  Sex: Female

DRUGS (4)
  1. VALIUM [Suspect]
     Indication: SUICIDE ATTEMPT
     Route: 048
     Dates: start: 20121021, end: 20121021
  2. RIVOTRIL [Suspect]
     Indication: SUICIDE ATTEMPT
     Route: 048
     Dates: start: 20121021, end: 20121021
  3. STILNOX [Suspect]
     Indication: SUICIDE ATTEMPT
     Route: 048
     Dates: start: 20121021, end: 20121021
  4. TAVOR [Suspect]
     Indication: SUICIDE ATTEMPT
     Route: 048
     Dates: start: 20121021, end: 20121021

REACTIONS (2)
  - Drug abuse [Unknown]
  - Sopor [Unknown]
